FAERS Safety Report 8157764-3 (Version None)
Quarter: 2012Q1

REPORT INFORMATION
  Report Type: 
  Country: None (occurrence: None)
  Receive Date: 20120222
  Receipt Date: 20120215
  Transmission Date: 20120608
  Serious: Yes (Other)
  Sender: FDA-Public Use
  Company Number: US-BAXTER-2012BH003996

PATIENT
  Sex: Male

DRUGS (7)
  1. BENADRYL [Concomitant]
     Indication: PREMEDICATION
     Route: 048
     Dates: start: 20120104, end: 20120104
  2. NEURONTIN [Concomitant]
     Indication: NEUROPATHY PERIPHERAL
     Route: 048
  3. NORCO [Concomitant]
     Indication: PRODUCT USED FOR UNKNOWN INDICATION
     Route: 048
  4. GAMMAGARD LIQUID [Suspect]
     Indication: OFF LABEL USE
     Route: 042
     Dates: start: 20120104, end: 20120104
  5. ACETAMINOPHEN [Concomitant]
     Indication: PREMEDICATION
     Route: 048
     Dates: start: 20120104, end: 20120104
  6. AMITRIPTYLINE HCL [Concomitant]
     Indication: NEUROPATHY PERIPHERAL
     Route: 048
  7. GAMMAGARD LIQUID [Suspect]
     Indication: AUTOIMMUNE NEUROPATHY
     Route: 042
     Dates: start: 20120104, end: 20120104

REACTIONS (2)
  - SKIN INFECTION [None]
  - BLISTER [None]
